FAERS Safety Report 5226452-5 (Version None)
Quarter: 2007Q1

REPORT INFORMATION
  Report Type: 
  Country: None (occurrence: None)
  Receive Date: 20061201
  Receipt Date: 20060928
  Transmission Date: 20070707
  Serious: No
  Sender: FDA-Public Use
  Company Number: US200609007107

PATIENT
  Age: 24 Year
  Sex: Female

DRUGS (1)
  1. CYMBALTA [Suspect]
     Indication: POSTPARTUM DEPRESSION
     Dosage: 60 MG, ORAL
     Route: 048
     Dates: start: 20060901

REACTIONS (2)
  - LACRIMATION INCREASED [None]
  - YAWNING [None]
